FAERS Safety Report 8915815 (Version 2)
Quarter: 2012Q4

REPORT INFORMATION
  Report Type: 
  Country: GB (occurrence: GB)
  Receive Date: 20121119
  Receipt Date: 20121123
  Transmission Date: 20130627
  Serious: Yes (Hospitalization, Other)
  Sender: FDA-Public Use
  Company Number: GB-PFIZER INC-GBWYE499008JAN04

PATIENT
  Age: 73 Year
  Sex: Male

DRUGS (3)
  1. IBUPROFEN [Suspect]
     Indication: PAIN
     Dosage: 400 mg, 3x/day
     Route: 048
     Dates: end: 20031205
  2. TRAMADOL [Concomitant]
     Indication: PRODUCT USED FOR UNKNOWN INDICATION
     Dosage: 50 mg, 3x/day
     Route: 048
  3. EFEXOR [Concomitant]
     Dosage: 75 mg, 1x/day
     Route: 048

REACTIONS (4)
  - Hiatus hernia [Recovering/Resolving]
  - Duodenal ulcer [Recovering/Resolving]
  - Haematemesis [Recovering/Resolving]
  - Helicobacter test positive [None]
